FAERS Safety Report 6784136-6 (Version None)
Quarter: 2010Q2

REPORT INFORMATION
  Report Type: 
  Country: None (occurrence: None)
  Receive Date: 20100622
  Receipt Date: 20100611
  Transmission Date: 20101027
  Serious: Yes (Other)
  Sender: FDA-Public Use
  Company Number: US-JNJFOC-20100604042

PATIENT
  Age: 56 Year
  Sex: Female
  Weight: 56.7 kg

DRUGS (6)
  1. EXTRA STRENGTH TYLENOL [Suspect]
     Route: 048
  2. EXTRA STRENGTH TYLENOL [Suspect]
     Indication: BACK PAIN
     Route: 048
  3. GLUCOPHAGE [Concomitant]
     Indication: DIABETES MELLITUS
  4. ACIPHEX [Concomitant]
     Indication: GASTRITIS
  5. PLAVIX [Concomitant]
     Indication: HYPERCOAGULATION
  6. ALBUTEROL [Concomitant]
     Indication: ASTHMA

REACTIONS (4)
  - DYSPNOEA [None]
  - SINUS CONGESTION [None]
  - SPEECH DISORDER [None]
  - WHEEZING [None]
